FAERS Safety Report 23698821 (Version 1)
Quarter: 2024Q2

REPORT INFORMATION
  Report Type: Spontaneous
  Country: US (occurrence: None)
  Receive Date: 20240402
  Receipt Date: 20240402
  Transmission Date: 20240716
  Serious: Yes (Other)
  Sender: FDA-Public Use
  Company Number: None

PATIENT
  Age: 20 Year
  Sex: Female
  Weight: 63 kg

DRUGS (1)
  1. DUPIXENT [Suspect]
     Active Substance: DUPILUMAB
     Dosage: 600 MG ONCE  ON DAY 1  SUBCUTANEOUS ?
     Route: 058
     Dates: start: 20240321

REACTIONS (3)
  - Rash [None]
  - Skin exfoliation [None]
  - Rash erythematous [None]

NARRATIVE: CASE EVENT DATE: 20240402
